FAERS Safety Report 22132480 (Version 2)
Quarter: 2023Q2

REPORT INFORMATION
  Report Type: Spontaneous
  Country: US (occurrence: US)
  Receive Date: 20230323
  Receipt Date: 20230417
  Transmission Date: 20230721
  Serious: No
  Sender: FDA-Public Use
  Company Number: US-BRISTOL-MYERS SQUIBB COMPANY-2023-041638

PATIENT
  Age: 74 Year
  Sex: Male
  Weight: 71.21 kg

DRUGS (2)
  1. REVLIMID [Suspect]
     Active Substance: LENALIDOMIDE
     Indication: Plasma cell myeloma
     Dosage: FREQ: 14D ON 7D OFF
     Route: 048
  2. REVLIMID [Suspect]
     Active Substance: LENALIDOMIDE
     Dosage: FREQ: 2WKSON,1WKOFF
     Route: 048

REACTIONS (4)
  - Fatigue [Unknown]
  - Abdominal discomfort [Unknown]
  - Off label use [Unknown]
  - Rash [Unknown]
